FAERS Safety Report 8026298-9 (Version None)
Quarter: 2012Q1

REPORT INFORMATION
  Report Type: 
  Country: None (occurrence: None)
  Receive Date: 20120105
  Receipt Date: 20111214
  Transmission Date: 20120608
  Serious: No
  Sender: FDA-Public Use
  Company Number: US-ABBOTT-11P-163-0883746-00

PATIENT
  Age: 91 Year
  Sex: Male

DRUGS (1)
  1. LEVOTHYROXINE SODIUM [Suspect]
     Indication: THYROID DISORDER

REACTIONS (2)
  - MALAISE [None]
  - DRUG ADMINISTRATION ERROR [None]
